FAERS Safety Report 4800026-X (Version None)
Quarter: 2005Q4

REPORT INFORMATION
  Report Type: 
  Country: None (occurrence: None)
  Receive Date: 20051017
  Receipt Date: 20051005
  Transmission Date: 20060501
  Serious: Yes (Other)
  Sender: FDA-Public Use
  Company Number: US-JNJFOC-20051001192

PATIENT
  Age: 75 Year
  Sex: Male

DRUGS (1)
  1. REMICADE [Suspect]
     Indication: RHEUMATOID ARTHRITIS
     Dosage: PATIENT HAS RECEIVED 16 DOSES OF INFLIXIMAB SINCE STARTING DRUG.
     Route: 042

REACTIONS (2)
  - METASTATIC SQUAMOUS CELL CARCINOMA [None]
  - NON-SMALL CELL LUNG CANCER [None]
